FAERS Safety Report 18394665 (Version 8)
Quarter: 2021Q4

REPORT INFORMATION
  Report Type: Report from Study
  Country: US (occurrence: US)
  Receive Date: 20201017
  Receipt Date: 20211102
  Transmission Date: 20220303
  Serious: Yes (Hospitalization, Other)
  Sender: FDA-Public Use
  Company Number: NVSC2020US277731

PATIENT
  Sex: Female

DRUGS (1)
  1. COSENTYX [Suspect]
     Active Substance: SECUKINUMAB
     Indication: Product used for unknown indication
     Dosage: UNK
     Route: 065

REACTIONS (11)
  - Cerebrovascular accident [Unknown]
  - Mass [Unknown]
  - Dizziness [Unknown]
  - Condition aggravated [Unknown]
  - Disease recurrence [Unknown]
  - Skin lesion [Unknown]
  - Product dose omission issue [Unknown]
  - Product availability issue [Unknown]
  - Balance disorder [Unknown]
  - Aphasia [Unknown]
  - Confusional state [Unknown]
